FAERS Safety Report 16133909 (Version 1)
Quarter: 2019Q1

REPORT INFORMATION
  Report Type: Other
  Country: CA (occurrence: CA)
  Receive Date: 20190329
  Receipt Date: 20190329
  Transmission Date: 20190418
  Serious: Yes (Hospitalization, Other)
  Sender: FDA-Public Use
  Company Number: CA-APOTEX-2019AP010159

PATIENT
  Age: 81 Year
  Sex: Female

DRUGS (5)
  1. ADVAIR HFA [Suspect]
     Active Substance: FLUTICASONE PROPIONATE\SALMETEROL XINAFOATE
     Indication: PRODUCT USED FOR UNKNOWN INDICATION
     Dosage: UNK
     Route: 065
  2. SPIRIVA [Suspect]
     Active Substance: TIOTROPIUM BROMIDE MONOHYDRATE
     Indication: PRODUCT USED FOR UNKNOWN INDICATION
     Dosage: 1 DF, QD
     Route: 065
  3. SALBUTAMOL [Suspect]
     Active Substance: ALBUTEROL
     Indication: PRODUCT USED FOR UNKNOWN INDICATION
     Dosage: 4 DF, QID
     Route: 065
  4. MEPOLIZUMAB [Suspect]
     Active Substance: MEPOLIZUMAB
     Indication: ASTHMA
     Dosage: 100 MG, UNK
     Route: 042
  5. SYMBICORT [Suspect]
     Active Substance: BUDESONIDE\FORMOTEROL FUMARATE DIHYDRATE
     Indication: PRODUCT USED FOR UNKNOWN INDICATION
     Dosage: 4 DF, BID
     Route: 065

REACTIONS (16)
  - Pneumonia [Unknown]
  - Diarrhoea [Unknown]
  - Sputum discoloured [Unknown]
  - Headache [Unknown]
  - Dyspnoea [Unknown]
  - Decreased activity [Unknown]
  - Fatigue [Unknown]
  - Wheezing [Unknown]
  - Malaise [Unknown]
  - Bradycardia [Unknown]
  - Sleep disorder due to a general medical condition [Unknown]
  - Influenza like illness [Unknown]
  - Vomiting [Unknown]
  - Asthma [Unknown]
  - Productive cough [Unknown]
  - Therapy cessation [Unknown]
